FAERS Safety Report 13119144 (Version 1)
Quarter: 2017Q1

REPORT INFORMATION
  Report Type: Report from Study
  Country: CA (occurrence: CA)
  Receive Date: 20170116
  Receipt Date: 20170116
  Transmission Date: 20170428
  Serious: Yes (Other)
  Sender: FDA-Public Use
  Company Number: CA-HLSUS-2017-CA-000030

PATIENT
  Age: 22 Year
  Sex: Female

DRUGS (1)
  1. CLOZARIL [Suspect]
     Active Substance: CLOZAPINE
     Route: 048
     Dates: start: 20150519

REACTIONS (2)
  - Neutropenia [Unknown]
  - Appendix disorder [Unknown]

NARRATIVE: CASE EVENT DATE: 20170113
